FAERS Safety Report 5538440-X (Version None)
Quarter: 2007Q4

REPORT INFORMATION
  Report Type: 
  Country: None (occurrence: None)
  Receive Date: 20071205
  Receipt Date: 20071119
  Transmission Date: 20080405
  Serious: Yes (Other)
  Sender: FDA-Public Use
  Company Number: 002#8#2007-00339

PATIENT
  Age: 60 Year
  Sex: Male
  Weight: 74 kg

DRUGS (8)
  1. BACLOFEN-DOSE-UNKNOWN-ORALLY-DISSINTEGRATING-TABLETS(BACLOFEN) [Suspect]
     Indication: QUADRIPLEGIA
     Dosage: 25MG, 1 IN 12 H,
  2. INSULIN [Concomitant]
  3. CIPROFLOCACIN [Concomitant]
  4. TELMISARTAN [Concomitant]
  5. GLYCERYL TRINITRATE [Concomitant]
  6. AMOXICILLIN AND CLACULANIC ACID [Concomitant]
  7. PIPERACILLIN [Concomitant]
  8. TAZOBACTAM [Concomitant]

REACTIONS (14)
  - BLOOD PRESSURE INCREASED [None]
  - COMA [None]
  - DRUG TOXICITY [None]
  - HAEMODIALYSIS [None]
  - HYPOTENSION [None]
  - HYPOTONIA [None]
  - LEUKOPLAKIA [None]
  - MEDICATION ERROR [None]
  - MUSCLE SPASMS [None]
  - OVERDOSE [None]
  - PNEUMONIA [None]
  - PROCALCITONIN INCREASED [None]
  - RENAL FAILURE ACUTE [None]
  - SEPSIS [None]
